FAERS Safety Report 5704615-X (Version None)
Quarter: 2008Q2

REPORT INFORMATION
  Report Type: 
  Country: None (occurrence: None)
  Receive Date: 20080409
  Receipt Date: 20080327
  Transmission Date: 20081010
  Serious: Yes (Other)
  Sender: FDA-Public Use
  Company Number: PAR_02137_2008

PATIENT
  Age: 6 Year
  Sex: Male

DRUGS (4)
  1. IBUPROFEN [Suspect]
     Indication: DRUG USE FOR UNKNOWN INDICATION
     Dosage: DF
  2. CEFTRIAXONE [Suspect]
     Indication: ARTHRITIS
     Dosage: 85  MG/KG PER DAY FOR 30 MINUTES INTRAVENOUS (NOT OTHERWISE SPECIFIED)
     Route: 042
  3. CEFTRIAXONE [Suspect]
     Indication: BACTERIAL INFECTION
     Dosage: 85  MG/KG PER DAY FOR 30 MINUTES INTRAVENOUS (NOT OTHERWISE SPECIFIED)
     Route: 042
  4. CEFTRIAXONE [Suspect]
     Indication: LYME DISEASE
     Dosage: 85  MG/KG PER DAY FOR 30 MINUTES INTRAVENOUS (NOT OTHERWISE SPECIFIED)
     Route: 042

REACTIONS (5)
  - ABDOMINAL PAIN LOWER [None]
  - HAEMATURIA [None]
  - HYPERCALCIURIA [None]
  - NEPHROLITHIASIS [None]
  - VOMITING [None]
